FAERS Safety Report 18307609 (Version 3)
Quarter: 2020Q4

REPORT INFORMATION
  Report Type: Report from Study
  Country: BR (occurrence: BR)
  Receive Date: 20200924
  Receipt Date: 20201026
  Transmission Date: 20210113
  Serious: Yes (Other)
  Sender: FDA-Public Use
  Company Number: BR-UCBSA-2020036941

PATIENT
  Sex: Female
  Weight: 49 kg

DRUGS (4)
  1. XARELTO [Concomitant]
     Active Substance: RIVAROXABAN
     Indication: THROMBOSIS
     Dosage: 20 MILLIGRAM, ONCE DAILY (QD)
     Route: 048
  2. CERTOLIZUMAB PEGOL RA [Suspect]
     Active Substance: CERTOLIZUMAB PEGOL
     Indication: RHEUMATOID ARTHRITIS
     Dosage: 200 MILLIGRAM, EV 15 DAYS
     Route: 058
     Dates: start: 20200819, end: 2020
  3. PURAN [Concomitant]
     Active Substance: LEVOTHYROXINE SODIUM
     Indication: HYPOTHYROIDISM
     Dosage: UNK UNK, ONCE DAILY (QD)
     Route: 048
  4. DEXANEURIN [Suspect]
     Active Substance: DEXAMETHASONE\LIDOCAINE\VITAMINS
     Indication: PAIN

REACTIONS (8)
  - Pneumonia [Recovering/Resolving]
  - Gait disturbance [Recovering/Resolving]
  - Sluggishness [Recovering/Resolving]
  - Weight increased [Recovering/Resolving]
  - Thrombosis [Recovering/Resolving]
  - Swelling [Recovering/Resolving]
  - SARS-CoV-2 test positive [Recovering/Resolving]
  - Adverse drug reaction [Recovering/Resolving]

NARRATIVE: CASE EVENT DATE: 2020
